FAERS Safety Report 22597963 (Version 1)
Quarter: 2023Q2

REPORT INFORMATION
  Report Type: Spontaneous
  Country: US (occurrence: US)
  Receive Date: 20230614
  Receipt Date: 20230614
  Transmission Date: 20230722
  Serious: No
  Sender: FDA-Public Use
  Company Number: US-SA-SAC20230613000278

PATIENT
  Age: 30 Year
  Sex: Female
  Weight: 101.15 kg

DRUGS (9)
  1. DUPIXENT [Suspect]
     Active Substance: DUPILUMAB
     Indication: Eosinophilic oesophagitis
     Dosage: 2 ML, QW
     Route: 058
     Dates: start: 20220708
  2. LAMOTRIGINE [Concomitant]
     Active Substance: LAMOTRIGINE
  3. LUBIPROSTONE [Concomitant]
     Active Substance: LUBIPROSTONE
  4. QUETIAPINE [Concomitant]
     Active Substance: QUETIAPINE
  5. TOPIRAMATE [Concomitant]
     Active Substance: TOPIRAMATE
  6. BUSPIRONE [Concomitant]
     Active Substance: BUSPIRONE HYDROCHLORIDE
  7. ATORVASTATIN [Concomitant]
     Active Substance: ATORVASTATIN
  8. MESALAMINE [Concomitant]
     Active Substance: MESALAMINE
  9. AUROVELA FE 1/20 [Concomitant]
     Active Substance: ETHINYL ESTRADIOL\NORETHINDRONE ACETATE

REACTIONS (1)
  - Dysphagia [Not Recovered/Not Resolved]

NARRATIVE: CASE EVENT DATE: 20230501
